FAERS Safety Report 4429850-2 (Version None)
Quarter: 2004Q3

REPORT INFORMATION
  Report Type: 
  Country: None (occurrence: None)
  Receive Date: 20040820
  Receipt Date: 20040810
  Transmission Date: 20050211
  Serious: Yes (Hospitalization)
  Sender: FDA-Public Use
  Company Number: US-JNJFOC-20040604207

PATIENT
  Age: 65 Year
  Sex: Female
  Weight: 43.09 kg

DRUGS (6)
  1. DURAGESIC [Suspect]
     Route: 062
     Dates: start: 20040401
  2. DURAGESIC [Suspect]
     Route: 062
     Dates: start: 20040401
  3. VALIUM [Concomitant]
     Indication: GASTROINTESTINAL DISORDER
  4. TEMAZEPAM [Concomitant]
     Indication: INSOMNIA
  5. CODEINE SUL TAB [Concomitant]
  6. STEROID INJECTIONS [Concomitant]
     Indication: PAIN
     Route: 050

REACTIONS (9)
  - BACK PAIN [None]
  - CHEST PAIN [None]
  - DIARRHOEA [None]
  - MEDICATION ERROR [None]
  - NAUSEA [None]
  - PAIN EXACERBATED [None]
  - URINARY TRACT INFECTION [None]
  - VOMITING [None]
  - WEIGHT DECREASED [None]
